FAERS Safety Report 6576203-7 (Version None)
Quarter: 2010Q1

REPORT INFORMATION
  Report Type: 
  Country: None (occurrence: None)
  Receive Date: 20100209
  Receipt Date: 20100129
  Transmission Date: 20100710
  Serious: Yes (Life-Threatening)
  Sender: FDA-Public Use
  Company Number: JP-AMGEN-US378011

PATIENT
  Sex: Male
  Weight: 67 kg

DRUGS (25)
  1. ENBREL [Suspect]
     Indication: RHEUMATOID ARTHRITIS
     Dosage: 25 MG ONCE/WEEK (LYOPHYLIZED)
     Route: 058
     Dates: start: 20080226, end: 20080402
  2. NEOISCOTIN [Concomitant]
     Indication: ANTIBIOTIC PROPHYLAXIS
     Dosage: UNKNOWN
     Route: 048
     Dates: start: 20080124
  3. DIDRONEL [Concomitant]
     Dosage: UNKNOWN
     Route: 048
  4. URSO 250 [Concomitant]
     Dosage: UNKNOWN
     Route: 048
  5. LASIX [Concomitant]
     Dosage: UNKNOWN
     Route: 048
  6. MUCOSTA [Concomitant]
     Dosage: UNKNOWN
     Route: 048
  7. PYRIDOXAL PHOSPHATE [Concomitant]
     Dosage: UNKNOWN
     Route: 048
  8. SENNOSIDE A [Concomitant]
     Dosage: UNKNOWN
     Route: 048
  9. CORINAEL [Concomitant]
     Dosage: UNKNOWN
     Route: 048
  10. BAKTAR [Concomitant]
     Dosage: UNKNOWN
     Route: 048
  11. MYSLEE [Concomitant]
     Dosage: UNKNOWN
     Route: 048
  12. MOHRUS [Concomitant]
     Indication: RHEUMATOID ARTHRITIS
     Dosage: UNKNOWN
     Route: 061
  13. SALAZOSULFAPYRIDINE [Concomitant]
     Indication: RHEUMATOID ARTHRITIS
     Route: 048
     Dates: start: 19970304, end: 20080403
  14. PREDNISOLONE [Concomitant]
     Indication: RHEUMATOID ARTHRITIS
     Route: 048
     Dates: start: 19970304, end: 20030114
  15. PREDNISOLONE [Concomitant]
     Route: 048
     Dates: start: 20030115, end: 20080123
  16. PREDNISOLONE [Concomitant]
     Route: 048
     Dates: start: 20080124, end: 20080310
  17. BAKUMONDOUTO [Concomitant]
     Dosage: UNKNOWN
     Route: 048
  18. TAKEPRON [Concomitant]
     Dosage: UNKNOWN
     Route: 048
  19. MARZULENE S [Concomitant]
     Dosage: UNKNOWN
     Route: 048
  20. PURSENNID [Concomitant]
     Dosage: UNKNOWN
     Route: 048
  21. LAC B [Concomitant]
     Dosage: UNKNOWN
     Route: 048
  22. DOXAZOSIN MESILATE [Concomitant]
     Dosage: UNKNOWN
     Route: 048
  23. MAGNESIUM OXIDE [Concomitant]
     Dosage: UNKNOWN
     Route: 048
  24. NORVASC [Concomitant]
     Dosage: UNKNOWN
     Route: 048
  25. FERRUM [Concomitant]
     Dosage: UNKNOWN
     Route: 048

REACTIONS (1)
  - PULMONARY ALVEOLAR HAEMORRHAGE [None]
